FAERS Safety Report 5043084-2 (Version None)
Quarter: 2006Q3

REPORT INFORMATION
  Report Type: 
  Country: None (occurrence: None)
  Receive Date: 20060705
  Receipt Date: 20060626
  Transmission Date: 20061208
  Serious: Yes (Other)
  Sender: FDA-Public Use
  Company Number: US-AVENTIS-200615527US

PATIENT
  Sex: Male
  Weight: 73.6 kg

DRUGS (7)
  1. LANTUS [Suspect]
     Indication: DIABETES MELLITUS INSULIN-DEPENDENT
     Dosage: DOSE UNIT: UNITS
     Dates: start: 20060501
  2. PROCARDIA [Concomitant]
     Dosage: DOSE: UNK
  3. SYNTHROID [Concomitant]
     Dosage: DOSE: UNK
  4. TRICOR [Concomitant]
     Dosage: DOSE: UNK
  5. HYDREA [Concomitant]
     Dosage: DOSE: UNK
  6. HUMALOG [Concomitant]
     Dosage: DOSE: UNK
  7. HUMALIN [Concomitant]
     Dosage: DOSE: 3 INJECTIONS DAILY

REACTIONS (6)
  - BLOOD GLUCOSE DECREASED [None]
  - BLOOD GLUCOSE FLUCTUATION [None]
  - BLOOD GLUCOSE INCREASED [None]
  - HYPERKALAEMIA [None]
  - VISION BLURRED [None]
  - WEIGHT DECREASED [None]
